FAERS Safety Report 6910381-2 (Version None)
Quarter: 2010Q3

REPORT INFORMATION
  Report Type: 
  Country: None (occurrence: None)
  Receive Date: 20100806
  Receipt Date: 20100727
  Transmission Date: 20110219
  Serious: Yes (Hospitalization)
  Sender: FDA-Public Use
  Company Number: DE-SANOFI-AVENTIS-2010SA043988

PATIENT
  Age: 58 Year
  Sex: Female
  Weight: 89 kg

DRUGS (5)
  1. DOCETAXEL [Suspect]
     Indication: BREAST CANCER
     Route: 041
     Dates: start: 20100526, end: 20100526
  2. GEMCITABINE [Suspect]
     Indication: BREAST CANCER
     Route: 041
     Dates: start: 20100526, end: 20100603
  3. NAVOBAN [Concomitant]
     Indication: BREAST CANCER
     Route: 042
     Dates: start: 20100526, end: 20100603
  4. DEXAMETHASONE [Concomitant]
     Indication: BREAST CANCER
     Route: 042
     Dates: start: 20100526, end: 20100603
  5. EMEND [Concomitant]
     Indication: BREAST CANCER
     Route: 048
     Dates: start: 20100526

REACTIONS (7)
  - DIARRHOEA [None]
  - HYPOCALCAEMIA [None]
  - LEUKOPENIA [None]
  - MUCOSAL INFLAMMATION [None]
  - NAUSEA [None]
  - STOMATITIS [None]
  - VOMITING [None]
